FAERS Safety Report 4773198-3 (Version None)
Quarter: 2005Q3

REPORT INFORMATION
  Report Type: 
  Country: None (occurrence: None)
  Receive Date: 20050919
  Receipt Date: 20050607
  Transmission Date: 20060218
  Serious: Yes (Hospitalization, Disabling)
  Sender: FDA-Public Use
  Company Number: US-MERCK-0506USA01442

PATIENT
  Age: 63 Year
  Sex: Male
  Weight: 98 kg

DRUGS (1)
  1. VIOXX [Suspect]
     Indication: POLYARTHRITIS
     Route: 048
     Dates: start: 20020124, end: 20040731

REACTIONS (20)
  - ACUTE MYOCARDIAL INFARCTION [None]
  - BRONCHITIS [None]
  - CELLULITIS [None]
  - CHRONIC LYMPHOCYTIC LEUKAEMIA [None]
  - CORONARY ARTERY OCCLUSION [None]
  - DILATATION ATRIAL [None]
  - DILATATION VENTRICULAR [None]
  - EJECTION FRACTION DECREASED [None]
  - HYPERSENSITIVITY [None]
  - LEFT VENTRICULAR END-DIASTOLIC PRESSURE INCREASED [None]
  - LYMPHADENOPATHY [None]
  - LYMPHOCYTIC LYMPHOMA [None]
  - MALIGNANT NEOPLASM PROGRESSION [None]
  - MITRAL VALVE INCOMPETENCE [None]
  - ORAL INFECTION [None]
  - PERIODONTAL DISEASE [None]
  - RECURRENT CANCER [None]
  - SINUS BRADYCARDIA [None]
  - TOOTH INFECTION [None]
  - VENTRICULAR HYPOKINESIA [None]
